FAERS Safety Report 5834610-1 (Version None)
Quarter: 2008Q3

REPORT INFORMATION
  Report Type: 
  Country: None (occurrence: None)
  Receive Date: 20080805
  Receipt Date: 20080724
  Transmission Date: 20090109
  Serious: Yes (Other)
  Sender: FDA-Public Use
  Company Number: PT-ELI_LILLY_AND_COMPANY-PT200807005337

PATIENT
  Age: 35 Year
  Sex: Female

DRUGS (2)
  1. CYMBALTA [Suspect]
     Indication: DEPRESSION
     Dosage: 60 MG, UNKNOWN
     Route: 048
     Dates: start: 20070723, end: 20080717
  2. UROFLOX [Concomitant]
     Dosage: 400 MG, 2/D
     Route: 048
     Dates: start: 20080507, end: 20080509

REACTIONS (1)
  - HEPATITIS TOXIC [None]
